FAERS Safety Report 7758650-0 (Version None)
Quarter: 2011Q3

REPORT INFORMATION
  Report Type: 
  Country: None (occurrence: None)
  Receive Date: 20110825
  Receipt Date: 20110527
  Transmission Date: 20111222
  Serious: Yes (Other)
  Sender: FDA-Public Use
  Company Number: 326772

PATIENT
  Age: 53 Year
  Sex: Female
  Weight: 71.2 kg

DRUGS (7)
  1. ATENOLOL [Concomitant]
  2. TRICOR /00090101/ (ADENOSINE) [Concomitant]
  3. VICTOZA [Suspect]
     Indication: TYPE 2 DIABETES MELLITUS
     Dosage: 1.2 MG, QD, SUBCUTANEOUS
     Route: 058
     Dates: start: 20110301, end: 20110411
  4. GLUCOPHAGE [Concomitant]
  5. SINGULAIR [Concomitant]
  6. NEXIUM [Concomitant]
  7. SPIRONOLACTONE [Concomitant]

REACTIONS (2)
  - BRONCHOSPASM [None]
  - ANGIOEDEMA [None]
